FAERS Safety Report 6372052-3 (Version None)
Quarter: 2009Q3

REPORT INFORMATION
  Report Type: 
  Country: None (occurrence: None)
  Receive Date: 20090917
  Receipt Date: 20090901
  Transmission Date: 20100115
  Serious: Yes (Disabling, Other)
  Sender: FDA-Public Use
  Company Number: 002884

PATIENT
  Age: 83 Year
  Sex: Male

DRUGS (2)
  1. MACUGEN [Suspect]
     Indication: MACULAR DEGENERATION
     Dosage: 0.3MG, SINGLE, INTRAOCULAR
     Route: 031
     Dates: start: 20090825, end: 20090825
  2. XYLOCAINE [Concomitant]

REACTIONS (1)
  - CEREBRAL INFARCTION [None]
